FAERS Safety Report 18655089 (Version 1)
Quarter: 2020Q4

REPORT INFORMATION
  Report Type: Spontaneous
  Country: CA (occurrence: CA)
  Receive Date: 20201223
  Receipt Date: 20201223
  Transmission Date: 20210114
  Serious: Yes (Hospitalization)
  Sender: FDA-Public Use
  Company Number: CA-JNJFOC-20201234567

PATIENT
  Age: 45 Year
  Sex: Female

DRUGS (8)
  1. TOPAMAX [Suspect]
     Active Substance: TOPIRAMATE
     Route: 048
  2. CITALOPRAM HYDROBROMIDE. [Suspect]
     Active Substance: CITALOPRAM HYDROBROMIDE
     Indication: MIGRAINE
     Route: 065
  3. LAMOTRIGINE. [Concomitant]
     Active Substance: LAMOTRIGINE
  4. TOPAMAX [Suspect]
     Active Substance: TOPIRAMATE
     Indication: MIGRAINE PROPHYLAXIS
     Route: 048
  5. CLOBAZAM. [Concomitant]
     Active Substance: CLOBAZAM
     Route: 048
  6. BRIVLERA [Concomitant]
     Active Substance: BRIVARACETAM
  7. AIMOVIG [Suspect]
     Active Substance: ERENUMAB-AOOE
     Indication: MIGRAINE
     Route: 058
  8. AIMOVIG [Suspect]
     Active Substance: ERENUMAB-AOOE
     Route: 058

REACTIONS (15)
  - Balance disorder [Unknown]
  - Generalised tonic-clonic seizure [Unknown]
  - Seizure [Unknown]
  - Head injury [Unknown]
  - Migraine [Unknown]
  - Drug dependence [Unknown]
  - Concussion [Unknown]
  - Epilepsy [Unknown]
  - Product dose omission issue [Unknown]
  - Decreased nasolabial fold [Unknown]
  - Dizziness [Unknown]
  - Petit mal epilepsy [Unknown]
  - Headache [Unknown]
  - Blood pressure abnormal [Unknown]
  - Amnesia [Unknown]
